FAERS Safety Report 6478370-2 (Version None)
Quarter: 2009Q4

REPORT INFORMATION
  Report Type: 
  Country: None (occurrence: None)
  Receive Date: 20091207
  Receipt Date: 20090129
  Transmission Date: 20100525
  Serious: No
  Sender: FDA-Public Use
  Company Number: US-AMGEN-KDL331018

PATIENT
  Sex: Female

DRUGS (3)
  1. ENBREL [Suspect]
     Indication: RHEUMATOID ARTHRITIS
     Route: 058
     Dates: start: 20080125
  2. PLAQUENIL [Concomitant]
     Route: 048
  3. METHOTREXATE [Concomitant]

REACTIONS (3)
  - BLOODY DISCHARGE [None]
  - OROPHARYNGEAL PAIN [None]
  - PRODUCTIVE COUGH [None]
